FAERS Safety Report 4700064-1 (Version None)
Quarter: 2005Q2

REPORT INFORMATION
  Report Type: 
  Country: None (occurrence: None)
  Receive Date: 20050627
  Receipt Date: 20050614
  Transmission Date: 20051028
  Serious: Yes (Other)
  Sender: FDA-Public Use
  Company Number: NZ-GLAXOSMITHKLINE-B0384393A

PATIENT
  Age: 57 Year
  Sex: Male

DRUGS (7)
  1. ALBUTEROL [Suspect]
     Indication: PREMEDICATION
     Route: 065
  2. ATRACURIUM [Suspect]
     Indication: ANAESTHESIA
     Route: 065
  3. OMEPRAZOLE [Suspect]
     Indication: PREMEDICATION
     Route: 065
  4. MIDAZOLAM [Suspect]
     Indication: ANAESTHESIA
     Route: 065
  5. FENTANYL [Suspect]
     Indication: ANAESTHESIA
     Route: 065
  6. PROPOFOL [Suspect]
     Indication: ANAESTHESIA
     Route: 065
  7. FLIXOTIDE [Concomitant]
     Indication: DRUG USE FOR UNKNOWN INDICATION
     Route: 065

REACTIONS (6)
  - ANAPHYLACTIC REACTION [None]
  - ERYTHEMA [None]
  - FIBRINOLYSIS [None]
  - HYPOTENSION [None]
  - PLATELET COUNT INCREASED [None]
  - TACHYCARDIA [None]
